FAERS Safety Report 6501934-4 (Version None)
Quarter: 2009Q4

REPORT INFORMATION
  Report Type: 
  Country: None (occurrence: None)
  Receive Date: 20091216
  Receipt Date: 20091207
  Transmission Date: 20100525
  Serious: Yes (Hospitalization)
  Sender: FDA-Public Use
  Company Number: DE-SANOFI-AVENTIS-2009SA008701

PATIENT
  Age: 59 Year

DRUGS (3)
  1. OXALIPLATIN [Suspect]
     Indication: COLON CANCER
     Route: 041
     Dates: start: 20061030, end: 20061030
  2. FLUOROURACIL [Suspect]
     Indication: COLON CANCER
     Route: 041
     Dates: start: 20061030, end: 20061030
  3. FOLINIC ACID [Suspect]
     Indication: COLON CANCER
     Route: 041
     Dates: start: 20061031, end: 20061031

REACTIONS (2)
  - CHEST PAIN [None]
  - DUODENITIS [None]
